FAERS Safety Report 8285704-5 (Version None)
Quarter: 2012Q2

REPORT INFORMATION
  Report Type: 
  Country: None (occurrence: None)
  Receive Date: 20120413
  Receipt Date: 20120404
  Transmission Date: 20120825
  Serious: Yes (Other)
  Sender: FDA-Public Use
  Company Number: CA-ROCHE-GNE299954

PATIENT
  Sex: Female
  Weight: 64.068 kg

DRUGS (2)
  1. XOLAIR [Suspect]
     Dosage: 150 MG, 1/MONTH
     Route: 058
     Dates: start: 20100323
  2. XOLAIR [Suspect]
     Indication: ASTHMA
     Dosage: 150 MG, 1/MONTH
     Route: 058
     Dates: start: 20070319

REACTIONS (9)
  - BLOOD PRESSURE INCREASED [None]
  - ASTHMA [None]
  - SINUSITIS [None]
  - NASOPHARYNGITIS [None]
  - WHEEZING [None]
  - COUGH [None]
  - UPPER RESPIRATORY TRACT INFECTION [None]
  - LUNG INFECTION [None]
  - BRONCHITIS [None]
